FAERS Safety Report 10563187 (Version 5)
Quarter: 2015Q3

REPORT INFORMATION
  Report Type: Spontaneous
  Country: US (occurrence: US)
  Receive Date: 20141104
  Receipt Date: 20150915
  Transmission Date: 20151125
  Serious: Yes (Death)
  Sender: FDA-Public Use
  Company Number: US-JNJFOC-20141019972

PATIENT
  Age: 29 Year
  Sex: Male
  Weight: 81.65 kg

DRUGS (3)
  1. INVEGA SUSTENNA [Suspect]
     Active Substance: PALIPERIDONE PALMITATE
     Indication: SCHIZOAFFECTIVE DISORDER
     Dosage: 4TH INJECTION
     Route: 030
     Dates: start: 201101
  2. INVEGA SUSTENNA [Suspect]
     Active Substance: PALIPERIDONE PALMITATE
     Indication: SCHIZOAFFECTIVE DISORDER
     Route: 030
  3. SEROQUEL [Concomitant]
     Active Substance: QUETIAPINE FUMARATE
     Indication: SLEEP DISORDER
     Route: 065

REACTIONS (5)
  - Completed suicide [Fatal]
  - Dystonia [Unknown]
  - Hallucination, auditory [Unknown]
  - Delusion [Unknown]
  - Product use issue [Unknown]

NARRATIVE: CASE EVENT DATE: 201101
